FAERS Safety Report 6747252-0 (Version None)
Quarter: 2010Q2

REPORT INFORMATION
  Report Type: 
  Country: None (occurrence: None)
  Receive Date: 20100528
  Receipt Date: 20100519
  Transmission Date: 20101027
  Serious: Yes (Hospitalization)
  Sender: FDA-Public Use
  Company Number: A0787812A

PATIENT
  Age: 57 Year
  Sex: Female

DRUGS (1)
  1. AVANDIA [Suspect]
     Route: 048
     Dates: start: 19991214, end: 20070301

REACTIONS (6)
  - AMNESIA [None]
  - ANXIETY [None]
  - APHASIA [None]
  - BONE DISORDER [None]
  - CEREBROVASCULAR ACCIDENT [None]
  - IMMOBILE [None]
